FAERS Safety Report 7829372-2 (Version None)
Quarter: 2011Q4

REPORT INFORMATION
  Report Type: 
  Country: None (occurrence: None)
  Receive Date: 20111020
  Receipt Date: 20111011
  Transmission Date: 20120403
  Serious: Yes (Other)
  Sender: FDA-Public Use
  Company Number: CA-ASTRAZENECA-2011SE62113

PATIENT
  Age: 71 Year
  Sex: Male

DRUGS (3)
  1. ASPIRIN [Concomitant]
     Route: 048
  2. CRESTOR [Suspect]
     Indication: BLOOD CHOLESTEROL ABNORMAL
     Route: 048
     Dates: start: 20080101
  3. RAN RABEPRAZOLE [Concomitant]
     Indication: GASTROOESOPHAGEAL REFLUX DISEASE
     Route: 048

REACTIONS (3)
  - GASTROOESOPHAGEAL REFLUX DISEASE [None]
  - NIGHTMARE [None]
  - NASAL DRYNESS [None]
